FAERS Safety Report 7720879-5 (Version None)
Quarter: 2011Q3

REPORT INFORMATION
  Report Type: 
  Country: None (occurrence: None)
  Receive Date: 20110825
  Receipt Date: 20110810
  Transmission Date: 20111222
  Serious: Yes (Hospitalization)
  Sender: FDA-Public Use
  Company Number: 15827058

PATIENT
  Age: 73 Year
  Sex: Male

DRUGS (15)
  1. VERAPAMIL (VERAPAMIL HCL) [Concomitant]
  2. ALLOPURINOL [Concomitant]
  3. ERDOMED (ERDOSTEINE) [Concomitant]
  4. PLACEBO [Suspect]
     Indication: EMBOLISM
     Dates: start: 20110525
  5. THEOPHYLLINE [Concomitant]
  6. KALII CHLORIDUM (POTASSIUM CHLORIDE) [Concomitant]
  7. INDAPAMIDE [Concomitant]
  8. APIXABAN [Suspect]
     Indication: EMBOLISM
     Dosage: 10 MILLIGRAM 1 DAY
     Route: 048
     Dates: start: 20110525
  9. ATROVENT [Concomitant]
  10. WARFARIN SODIUM [Suspect]
     Indication: EMBOLISM
     Dosage: 2 MILLIGRAM 1 DAY
     Route: 048
     Dates: start: 20110525
  11. OMEPRAZOLE [Concomitant]
  12. PREDUCTAL (TRIMETAZIDINE HCL) [Concomitant]
  13. TAMSULOSIN (TAMSULOSIN HCL) [Concomitant]
  14. ENOXAPARIN SODIUM [Suspect]
     Indication: EMBOLISM
     Dosage: 1.48 MILLILITER 1 DAY
     Route: 058
     Dates: start: 20110525, end: 20110529
  15. PERINDOPRIL ERBUMINE [Concomitant]

REACTIONS (11)
  - GASTRIC POLYPS [None]
  - BLOOD AMYLASE INCREASED [None]
  - HYPOTENSION [None]
  - WHITE BLOOD CELL COUNT INCREASED [None]
  - OESOPHAGITIS [None]
  - DEHYDRATION [None]
  - INTERNATIONAL NORMALISED RATIO INCREASED [None]
  - RED BLOOD CELL COUNT INCREASED [None]
  - HAEMATURIA [None]
  - DUODENOGASTRIC REFLUX [None]
  - DYSPEPSIA [None]
